FAERS Safety Report 5746741-5 (Version None)
Quarter: 2008Q2

REPORT INFORMATION
  Report Type: 
  Country: None (occurrence: None)
  Receive Date: 20080522
  Receipt Date: 20080514
  Transmission Date: 20081010
  Serious: No
  Sender: FDA-Public Use
  Company Number: BR-PFIZER INC-2008035172

PATIENT
  Sex: Female

DRUGS (4)
  1. DETRUSITOL LA [Suspect]
     Indication: URINARY INCONTINENCE
     Route: 048
  2. OXYBUTYNIN CHLORIDE [Concomitant]
  3. ANTICOAGULANTS [Concomitant]
  4. ALL OTHER THERAPEUTIC PRODUCTS [Concomitant]

REACTIONS (1)
  - COUGH [None]
